FAERS Safety Report 9819932 (Version 1)
Quarter: 2013Q4

REPORT INFORMATION
  Report Type: Spontaneous
  Country: US (occurrence: None)
  Receive Date: 20131223
  Receipt Date: 20131223
  Transmission Date: 20140711
  Serious: No
  Sender: FDA-Public Use
  Company Number: 218093

PATIENT
  Age: 69 Year
  Sex: Male

DRUGS (1)
  1. PICATO [Suspect]
     Indication: ACTINIC KERATOSIS
     Dosage: ON ENTIRE FACE
     Dates: start: 20120629, end: 20120701

REACTIONS (6)
  - Application site dryness [None]
  - Application site paraesthesia [None]
  - Application site pain [None]
  - Muscle tightness [None]
  - Drug ineffective [None]
  - Drug administration error [None]
